FAERS Safety Report 18817751 (Version 35)
Quarter: 2022Q3

REPORT INFORMATION
  Report Type: Report from Study
  Country: GB (occurrence: GB)
  Receive Date: 20210201
  Receipt Date: 20220730
  Transmission Date: 20221027
  Serious: Yes (Death, Hospitalization, Other)
  Sender: FDA-Public Use
  Company Number: GB-ROCHE-1745230

PATIENT
  Age: 0 Year
  Sex: Female

DRUGS (23)
  1. ADALIMUMAB [Suspect]
     Active Substance: ADALIMUMAB
     Indication: Product used for unknown indication
     Route: 058
     Dates: start: 20151124
  2. EXEMESTANE [Suspect]
     Active Substance: EXEMESTANE
     Indication: Breast cancer metastatic
     Route: 065
     Dates: start: 20160531, end: 20160610
  3. EXEMESTANE [Suspect]
     Active Substance: EXEMESTANE
     Route: 065
     Dates: start: 20160712
  4. HYALURONATE SODIUM [Suspect]
     Active Substance: HYALURONATE SODIUM
     Indication: Breast cancer metastatic
     Route: 065
     Dates: start: 20160531, end: 20161115
  5. HYALURONATE SODIUM [Suspect]
     Active Substance: HYALURONATE SODIUM
     Route: 065
     Dates: start: 20151124, end: 20151221
  6. SOLTAMOX [Suspect]
     Active Substance: TAMOXIFEN CITRATE
     Indication: Breast cancer metastatic
     Route: 065
  7. TRASTUZUMAB [Suspect]
     Active Substance: TRASTUZUMAB
     Indication: Breast cancer metastatic
     Dosage: 600 MG, EVERY 3 WEEKS
     Route: 065
     Dates: start: 20151124, end: 20151221
  8. TRASTUZUMAB [Suspect]
     Active Substance: TRASTUZUMAB
     Dosage: 600 MILLIGRAM, PER 3 WEEKS
     Route: 065
     Dates: start: 20160531, end: 20161115
  9. HYALURONIDASE (HUMAN RECOMBINANT) [Suspect]
     Active Substance: HYALURONIDASE (HUMAN RECOMBINANT)
     Indication: HER2 positive breast cancer
     Dosage: 600 MILLIGRAM, EVERY 3 WEEKS
     Route: 065
     Dates: start: 20160531, end: 20161115
  10. HYALURONIDASE (HUMAN RECOMBINANT) [Suspect]
     Active Substance: HYALURONIDASE (HUMAN RECOMBINANT)
     Dosage: 600 MG, EVERY 3 WEEKS
     Route: 065
     Dates: start: 20151124, end: 20151221
  11. TAMOXIFEN [Suspect]
     Active Substance: TAMOXIFEN
     Indication: HER2 positive breast cancer
     Dosage: EVERYDAY
     Route: 065
     Dates: start: 20160712, end: 20160802
  12. CAPECITABINE [Suspect]
     Active Substance: CAPECITABINE
     Indication: HER2 positive breast cancer
     Route: 065
     Dates: start: 20161122, end: 20161213
  13. CAPECITABINE [Suspect]
     Active Substance: CAPECITABINE
     Route: 065
     Dates: start: 20161213, end: 20161216
  14. CAPECITABINE [Suspect]
     Active Substance: CAPECITABINE
     Route: 065
  15. PACLITAXEL [Suspect]
     Active Substance: PACLITAXEL
     Indication: HER2 positive breast cancer
     Dosage: 141 MILLIGRAM, MONTHLY
     Route: 065
     Dates: start: 20151124, end: 20151221
  16. PACLITAXEL [Suspect]
     Active Substance: PACLITAXEL
     Route: 065
     Dates: start: 20161122
  17. CHOLECALCIFEROL [Concomitant]
     Active Substance: CHOLECALCIFEROL
     Indication: Product used for unknown indication
     Dates: start: 20101221
  18. ENOXAPARIN [Concomitant]
     Active Substance: ENOXAPARIN
     Indication: Embolism venous
     Dates: start: 20160104, end: 20160106
  19. ENOXAPARIN [Concomitant]
     Active Substance: ENOXAPARIN
     Dates: start: 20160106
  20. CALCIUM CARBONATE\CHOLECALCIFEROL [Concomitant]
     Active Substance: CALCIUM CARBONATE\CHOLECALCIFEROL
     Indication: Product used for unknown indication
     Dates: start: 20101221, end: 201511
  21. CALCIUM CARBONATE\CHOLECALCIFEROL [Concomitant]
     Active Substance: CALCIUM CARBONATE\CHOLECALCIFEROL
     Dates: start: 20101221
  22. OMEPRAZOLE [Concomitant]
     Active Substance: OMEPRAZOLE
     Indication: Product used for unknown indication
     Dates: start: 20170530
  23. OMEPRAZOLE [Concomitant]
     Active Substance: OMEPRAZOLE

REACTIONS (66)
  - Brain injury [Fatal]
  - Intestinal ischaemia [Fatal]
  - Circulatory collapse [Fatal]
  - Ascites [Not Recovered/Not Resolved]
  - Asthenia [Not Recovered/Not Resolved]
  - Hypoalbuminaemia [Recovered/Resolved]
  - Hypertension [Recovered/Resolved with Sequelae]
  - Blood creatinine increased [Recovered/Resolved]
  - Pain [Recovered/Resolved]
  - Dyspnoea [Recovered/Resolved]
  - Agitation [Recovered/Resolved]
  - Cerebral haemorrhage [Recovered/Resolved with Sequelae]
  - Blood phosphorus increased [Recovered/Resolved]
  - Protein total decreased [Recovered/Resolved]
  - Sensory disturbance [Not Recovered/Not Resolved]
  - Constipation [Recovered/Resolved]
  - Blood glucose increased [Recovered/Resolved]
  - Hypokalaemia [Recovered/Resolved]
  - Hypernatraemia [Recovered/Resolved]
  - White blood cell count increased [Recovered/Resolved]
  - Neutrophil count increased [Recovered/Resolved]
  - Lymphopenia [Recovered/Resolved with Sequelae]
  - Balance disorder [Not Recovered/Not Resolved]
  - Nausea [Recovered/Resolved]
  - Urinary tract infection [Unknown]
  - Blood alkaline phosphatase increased [Recovered/Resolved with Sequelae]
  - Blood urea increased [Unknown]
  - Blood bilirubin increased [Recovered/Resolved]
  - Pyrexia [Recovered/Resolved]
  - C-reactive protein increased [Recovered/Resolved]
  - Aspartate aminotransferase increased [Recovered/Resolved]
  - Headache [Unknown]
  - Depressed mood [Unknown]
  - Injection site pain [Unknown]
  - Muscle twitching [Unknown]
  - Sinusitis [Unknown]
  - Musculoskeletal stiffness [Unknown]
  - Crohn^s disease [Not Recovered/Not Resolved]
  - Neck pain [Unknown]
  - Malaise [Unknown]
  - Irritability [Recovered/Resolved]
  - Tremor [Unknown]
  - Crying [Unknown]
  - Back pain [Recovered/Resolved]
  - Colitis ulcerative [Recovering/Resolving]
  - Insomnia [Unknown]
  - Malaise [Not Recovered/Not Resolved]
  - Haemoglobin decreased [Not Recovered/Not Resolved]
  - Blood phosphorus increased [Recovered/Resolved]
  - Hypokalaemia [Recovered/Resolved]
  - Alanine aminotransferase increased [Recovered/Resolved]
  - Platelet count increased [Recovered/Resolved]
  - Vomiting [Recovered/Resolved]
  - Aspartate aminotransferase increased [Recovered/Resolved]
  - Aspartate aminotransferase increased [Recovered/Resolved]
  - Dyspnoea [Recovered/Resolved]
  - Blood bilirubin increased [Recovered/Resolved]
  - Diarrhoea [Recovered/Resolved]
  - Blood urea increased [Unknown]
  - Fatigue [Recovered/Resolved]
  - C-reactive protein increased [Recovered/Resolved]
  - Blood alkaline phosphatase increased [Recovered/Resolved with Sequelae]
  - Transaminases increased [Recovered/Resolved]
  - Blood phosphorus increased [Recovered/Resolved]
  - Abdominal pain upper [Unknown]
  - Incorrect dose administered [Unknown]

NARRATIVE: CASE EVENT DATE: 20151101
